FAERS Safety Report 8856865 (Version 1)
Quarter: 2012Q4

REPORT INFORMATION
  Report Type: Spontaneous
  Country: US (occurrence: None)
  Receive Date: 20121019
  Receipt Date: 20121019
  Transmission Date: 20130627
  Serious: Yes (Other)
  Sender: FDA-Public Use
  Company Number: 9039997-2012-00074

PATIENT
  Age: 71 Year
  Sex: Male
  Weight: 72.58 kg

DRUGS (5)
  1. LEVULAN KERASTICK [Suspect]
     Indication: ACTINIC KERATOSIS
     Route: 061
     Dates: start: 20121005
  2. SIMVASTATIN [Concomitant]
  3. ASA [Concomitant]
  4. LISINOPRIL [Concomitant]
  5. VIAGRA [Concomitant]

REACTIONS (6)
  - Muscle twitching [None]
  - Nausea [None]
  - Pain [None]
  - Hyperventilation [None]
  - Syncope [None]
  - Presyncope [None]
